FAERS Safety Report 8781833 (Version 1)
Quarter: 2012Q4

REPORT INFORMATION
  Report Type: 
  Country: US (occurrence: US)
  Receive Date: 20120913
  Receipt Date: 20120913
  Transmission Date: 20130627
  Serious: Yes (Hospitalization)
  Sender: FDA-Public Use
  Company Number: US-NAPPMUNDI-USA-2012-0092831

PATIENT
  Sex: Female

DRUGS (1)
  1. DILAUDID INJECTION [Suspect]
     Indication: PAIN
     Dosage: UNK UNK, see text

REACTIONS (4)
  - Hospitalisation [Unknown]
  - Pain [Unknown]
  - Inadequate analgesia [Unknown]
  - Drug administration error [None]
